FAERS Safety Report 15929858 (Version 2)
Quarter: 2019Q2

REPORT INFORMATION
  Report Type: Spontaneous
  Country: IN (occurrence: IN)
  Receive Date: 20190206
  Receipt Date: 20190404
  Transmission Date: 20190711
  Serious: Yes (Other)
  Sender: FDA-Public Use
  Company Number: IN-MYLANLABS-2019M1011650

PATIENT
  Age: 45 Year
  Sex: Female

DRUGS (11)
  1. LITHIUM. [Concomitant]
     Active Substance: LITHIUM
     Indication: SCHIZOAFFECTIVE DISORDER
     Dosage: 900 MILLIGRAM
  2. RISPERIDONE. [Concomitant]
     Active Substance: RISPERIDONE
     Indication: SCHIZOAFFECTIVE DISORDER
     Dosage: 4 MILLIGRAM
  3. QUETIAPINE. [Concomitant]
     Active Substance: QUETIAPINE
     Indication: SCHIZOAFFECTIVE DISORDER
     Dosage: 150 MILLIGRAM
  4. LORAZEPAM. [Concomitant]
     Active Substance: LORAZEPAM
     Indication: SCHIZOAFFECTIVE DISORDER
     Dosage: 2 MILLIGRAM
  5. QUETIAPINE. [Concomitant]
     Active Substance: QUETIAPINE
     Indication: MANIA
  6. RISPERIDONE. [Concomitant]
     Active Substance: RISPERIDONE
     Indication: MANIA
  7. CLOZAPINE. [Suspect]
     Active Substance: CLOZAPINE
     Indication: SCHIZOAFFECTIVE DISORDER
     Dosage: 450 MILLIGRAM
     Dates: start: 201605, end: 201610
  8. ZUCLOPENTHIXOL [Concomitant]
     Active Substance: ZUCLOPENTHIXOL
     Indication: SCHIZOAFFECTIVE DISORDER
     Dosage: 400 MILLIGRAM
     Route: 030
  9. CLOZAPINE. [Suspect]
     Active Substance: CLOZAPINE
     Dosage: 650 MILLIGRAM
     Dates: start: 201610, end: 201701
  10. LORAZEPAM. [Concomitant]
     Active Substance: LORAZEPAM
     Indication: INSOMNIA
  11. LITHIUM. [Concomitant]
     Active Substance: LITHIUM
     Indication: MANIA

REACTIONS (2)
  - Exhibitionism [Unknown]
  - Hypersexuality [Recovering/Resolving]

NARRATIVE: CASE EVENT DATE: 201701
